FAERS Safety Report 4786104-2 (Version None)
Quarter: 2005Q4

REPORT INFORMATION
  Report Type: 
  Country: None (occurrence: None)
  Receive Date: 20051003
  Receipt Date: 20051003
  Transmission Date: 20060501
  Serious: Yes (Other)
  Sender: FDA-Public Use
  Company Number: None

PATIENT
  Sex: Male
  Weight: 54.8852 kg

DRUGS (3)
  1. CARIMUNE [Suspect]
     Indication: OPSOCLONUS MYOCLONUS
     Dosage: 54 GRAMS MONTHLY IV DROP
     Route: 042
     Dates: start: 20000101, end: 20050909
  2. DECADRON [Concomitant]
  3. CELLCEPT [Concomitant]

REACTIONS (3)
  - HEPATITIS B CORE ANTIGEN POSITIVE [None]
  - HEPATITIS B E ANTIGEN POSITIVE [None]
  - HEPATITIS B SURFACE ANTIGEN POSITIVE [None]
